FAERS Safety Report 15962861 (Version 2)
Quarter: 2019Q2

REPORT INFORMATION
  Report Type: Report from Study
  Country: US (occurrence: US)
  Receive Date: 20190214
  Receipt Date: 20190502
  Transmission Date: 20190711
  Serious: Yes (Other)
  Sender: FDA-Public Use
  Company Number: US-PFIZER INC-2019054437

PATIENT
  Age: 52 Year
  Sex: Female
  Weight: 107 kg

DRUGS (2)
  1. CRIZOTINIB [Suspect]
     Active Substance: CRIZOTINIB
     Dosage: UNK
     Route: 048
     Dates: start: 20190201
  2. CRIZOTINIB [Suspect]
     Active Substance: CRIZOTINIB
     Indication: NON-SMALL CELL LUNG CANCER
     Dosage: 250 MG, 2X/DAY
     Route: 048
     Dates: start: 20180410, end: 20190128

REACTIONS (1)
  - Embolism [Unknown]

NARRATIVE: CASE EVENT DATE: 20190128
